FAERS Safety Report 6285127-4 (Version None)
Quarter: 2009Q3

REPORT INFORMATION
  Report Type: 
  Country: None (occurrence: None)
  Receive Date: 20090727
  Receipt Date: 20090717
  Transmission Date: 20100115
  Serious: Yes (Other)
  Sender: FDA-Public Use
  Company Number: AU-PFIZER INC-2009221955

PATIENT

DRUGS (1)
  1. VORICONAZOLE [Suspect]

REACTIONS (1)
  - NERVOUS SYSTEM DISORDER [None]
